FAERS Safety Report 4764744-4 (Version None)
Quarter: 2005Q3

REPORT INFORMATION
  Report Type: 
  Country: None (occurrence: None)
  Receive Date: 20050909
  Receipt Date: 20050729
  Transmission Date: 20060218
  Serious: Yes (Hospitalization)
  Sender: FDA-Public Use
  Company Number: US-MERCK-0508USA00479

PATIENT
  Age: 56 Year
  Sex: Male
  Weight: 90 kg

DRUGS (11)
  1. VIOXX [Suspect]
     Indication: ARTHRITIS
     Route: 048
     Dates: start: 20020621, end: 20041001
  2. PRILOSEC [Concomitant]
     Route: 065
  3. PLAVIX [Concomitant]
     Route: 065
  4. ZOCOR [Concomitant]
     Route: 048
  5. ALTACE [Concomitant]
     Route: 065
  6. ATROPINE SULFATE AND DIPHENOXYLATE HYDROCHLORIDE [Concomitant]
     Route: 065
  7. DICYCLOMINE HYDROCHLORIDE [Concomitant]
     Route: 065
  8. TRAMADOL HYDROCHLORIDE [Concomitant]
     Route: 065
  9. CLARINEX [Concomitant]
     Route: 065
  10. ZITHROMAX [Concomitant]
     Route: 065
  11. CEPHALEXIN [Concomitant]
     Route: 065

REACTIONS (3)
  - ANGINA PECTORIS [None]
  - DEPRESSION [None]
  - MYOCARDIAL INFARCTION [None]
